FAERS Safety Report 16760724 (Version 1)
Quarter: 2019Q3

REPORT INFORMATION
  Report Type: Spontaneous
  Country: NL (occurrence: NL)
  Receive Date: 20190830
  Receipt Date: 20190830
  Transmission Date: 20191005
  Serious: Yes (Hospitalization, Other)
  Sender: FDA-Public Use
  Company Number: NL-ABBVIE-19K-114-2905750-00

PATIENT
  Age: 48 Year
  Sex: Female

DRUGS (2)
  1. LUCRIN [Suspect]
     Active Substance: LEUPROLIDE ACETATE
     Indication: UTERINE LEIOMYOMA
     Route: 065
     Dates: start: 201810, end: 201811
  2. LUCRIN [Suspect]
     Active Substance: LEUPROLIDE ACETATE
     Route: 065
     Dates: start: 201812

REACTIONS (11)
  - Emotional disorder [Unknown]
  - Visual impairment [Unknown]
  - Toothache [Unknown]
  - Diabetes mellitus [Unknown]
  - Fungal infection [Unknown]
  - Loose tooth [Unknown]
  - Gastrointestinal inflammation [Unknown]
  - Syncope [Unknown]
  - Pain in extremity [Unknown]
  - Pharyngeal inflammation [Unknown]
  - Pyrexia [Unknown]
